FAERS Safety Report 5081564-4 (Version None)
Quarter: 2006Q3

REPORT INFORMATION
  Report Type: 
  Country: None (occurrence: None)
  Receive Date: 20060811
  Receipt Date: 20060804
  Transmission Date: 20061208
  Serious: Yes (Hospitalization)
  Sender: FDA-Public Use
  Company Number: 233842K06USA

PATIENT
  Age: 39 Year
  Sex: Female
  Weight: 68.0396 kg

DRUGS (3)
  1. REBIF [Suspect]
     Indication: MULTIPLE SCLEROSIS
     Dosage: 1 IN 2 DAYS
     Dates: start: 20050602, end: 20050701
  2. CLARITIN [Concomitant]
  3. DOXEPIN HCL [Concomitant]

REACTIONS (2)
  - PHARYNGEAL OEDEMA [None]
  - RESPIRATORY ARREST [None]
